FAERS Safety Report 4997513-0 (Version None)
Quarter: 2006Q2

REPORT INFORMATION
  Report Type: 
  Country: None (occurrence: None)
  Receive Date: 20060509
  Receipt Date: 20060118
  Transmission Date: 20061013
  Serious: Yes (Hospitalization, Disabling, Other)
  Sender: FDA-Public Use
  Company Number: US-MERCK-0601USA02211

PATIENT
  Age: 52 Year
  Sex: Female
  Weight: 82 kg

DRUGS (2)
  1. VIOXX [Suspect]
     Indication: ARTHRALGIA
     Route: 048
     Dates: start: 20001121, end: 20030728
  2. VIOXX [Suspect]
     Indication: MUSCULOSKELETAL STIFFNESS
     Route: 048
     Dates: start: 20001121, end: 20030728

REACTIONS (3)
  - CEREBROVASCULAR ACCIDENT [None]
  - FATIGUE [None]
  - MYOCARDIAL INFARCTION [None]
